FAERS Safety Report 25357981 (Version 2)
Quarter: 2025Q2

REPORT INFORMATION
  Report Type: Spontaneous
  Country: FR (occurrence: FR)
  Receive Date: 20250526
  Receipt Date: 20250603
  Transmission Date: 20250717
  Serious: Yes (Life-Threatening, Hospitalization, Other)
  Sender: TEVA
  Company Number: FR-TEVA-VS-3334606

PATIENT
  Age: 71 Year
  Sex: Male

DRUGS (4)
  1. CLOPIDOGREL [Suspect]
     Active Substance: CLOPIDOGREL BISULFATE
     Indication: Antiplatelet therapy
     Route: 065
  2. DOCETAXEL [Suspect]
     Active Substance: DOCETAXEL
     Indication: Prostate cancer metastatic
     Route: 065
  3. ASPIRIN LYSINE [Suspect]
     Active Substance: ASPIRIN LYSINE
     Indication: Antiplatelet therapy
     Route: 065
  4. TINZAPARIN [Suspect]
     Active Substance: TINZAPARIN
     Indication: Anticoagulant therapy
     Dosage: DOSE-14000U
     Route: 065

REACTIONS (6)
  - Myelosuppression [Unknown]
  - Epistaxis [Recovered/Resolved]
  - Pneumonia aspiration [Recovering/Resolving]
  - Tooth socket haemorrhage [Recovering/Resolving]
  - Shock haemorrhagic [Recovering/Resolving]
  - Haematemesis [Unknown]
